FAERS Safety Report 8318981-2 (Version None)
Quarter: 2012Q2

REPORT INFORMATION
  Report Type: 
  Country: None (occurrence: None)
  Receive Date: 20120427
  Receipt Date: 20120419
  Transmission Date: 20120825
  Serious: Yes (Other)
  Sender: FDA-Public Use
  Company Number: GB-BIOMARINP-002510

PATIENT
  Sex: Female

DRUGS (3)
  1. KUVAN [Suspect]
     Indication: PRODUCT USED FOR UNKNOWN INDICATION
     Route: 064
  2. GAVISCON [Concomitant]
     Indication: PRODUCT USED FOR UNKNOWN INDICATION
     Dates: start: 20110713, end: 20110820
  3. TYROSINE [Concomitant]
     Indication: PRODUCT USED FOR UNKNOWN INDICATION
     Dates: start: 20110511

REACTIONS (4)
  - FOETAL DISTRESS SYNDROME [None]
  - FOETAL EXPOSURE DURING PREGNANCY [None]
  - MICROCEPHALY [None]
  - LOW BIRTH WEIGHT BABY [None]
